FAERS Safety Report 6442011-0 (Version None)
Quarter: 2009Q4

REPORT INFORMATION
  Report Type: 
  Country: None (occurrence: None)
  Receive Date: 20091116
  Receipt Date: 20091111
  Transmission Date: 20100525
  Serious: Yes (Other)
  Sender: FDA-Public Use
  Company Number: JP-GENENTECH-294035

PATIENT
  Sex: Male

DRUGS (1)
  1. ACTIVASE [Suspect]
     Indication: BASILAR ARTERY OCCLUSION
     Dosage: 24000000 IU, QD
     Route: 041
     Dates: start: 20090311, end: 20090311

REACTIONS (1)
  - ACUTE MYOCARDIAL INFARCTION [None]
